FAERS Safety Report 10054887 (Version 2)
Quarter: 2014Q2

REPORT INFORMATION
  Report Type: Spontaneous
  Country: MX (occurrence: MX)
  Receive Date: 20140402
  Receipt Date: 20140416
  Transmission Date: 20141212
  Serious: Yes (Death)
  Sender: FDA-Public Use
  Company Number: MX-BIOMARINAP-MX-2014-102930

PATIENT
  Age: 4 Year
  Sex: Male

DRUGS (4)
  1. ALDURAZYME [Suspect]
     Indication: MUCOPOLYSACCHARIDOSIS I
     Dosage: 0.58 MG/KG, QW
     Route: 042
     Dates: start: 20130808, end: 20140130
  2. LORATADINE [Concomitant]
     Indication: PREMEDICATION
  3. RANITIDINE [Concomitant]
     Indication: PREMEDICATION
  4. PARACETAMOL [Concomitant]
     Indication: PREMEDICATION

REACTIONS (2)
  - Obstructive airways disorder [Fatal]
  - Respiratory tract infection [Not Recovered/Not Resolved]
